FAERS Safety Report 8052207-2 (Version None)
Quarter: 2012Q1

REPORT INFORMATION
  Report Type: 
  Country: None (occurrence: None)
  Receive Date: 20120118
  Receipt Date: 20120116
  Transmission Date: 20120608
  Serious: No
  Sender: FDA-Public Use
  Company Number: US-PFIZER INC-2012012035

PATIENT
  Sex: Male
  Weight: 90.703 kg

DRUGS (4)
  1. NEURONTIN [Suspect]
     Indication: COMPLEX REGIONAL PAIN SYNDROME
     Dosage: 3200 MG, DAILY
     Dates: start: 20031001, end: 20050101
  2. BACLOFEN [Concomitant]
     Indication: COMPLEX REGIONAL PAIN SYNDROME
     Dosage: 10 MG, 2X/DAY
  3. MYOBLOC [Concomitant]
     Indication: COMPLEX REGIONAL PAIN SYNDROME
     Dosage: 0.5 MG, 2X/DAY
  4. AMBIEN [Concomitant]
     Indication: SLEEP DISORDER
     Dosage: 5-10MG AS NEEDED EVERY NIGHT, DAILY

REACTIONS (1)
  - DRUG INEFFECTIVE [None]
